FAERS Safety Report 5918267-7 (Version None)
Quarter: 2008Q4

REPORT INFORMATION
  Report Type: 
  Country: None (occurrence: None)
  Receive Date: 20081010
  Receipt Date: 20080929
  Transmission Date: 20090506
  Serious: Yes (Other)
  Sender: FDA-Public Use
  Company Number: 2008018454

PATIENT
  Age: 22 Year
  Sex: Female
  Weight: 90.7194 kg

DRUGS (1)
  1. ROLAIDS EXTRA STRENGTH (MAGNESIUM HYDROXIDE, CALCIM CARBONATE) [Suspect]
     Indication: NAUSEA
     Dosage: 2 TABLETS AT A TIME 2X PE DAY, ORAL
     Route: 048
     Dates: start: 20080525

REACTIONS (1)
  - PRODUCT QUALITY ISSUE [None]
